FAERS Safety Report 8377266-9 (Version None)
Quarter: 2012Q2

REPORT INFORMATION
  Report Type: 
  Country: None (occurrence: None)
  Receive Date: 20120522
  Receipt Date: 20120510
  Transmission Date: 20120825
  Serious: Yes (Other)
  Sender: FDA-Public Use
  Company Number: GB-UCBSA-057191

PATIENT
  Age: 43 Year
  Sex: Male

DRUGS (6)
  1. ACETAMINOPHEN AND CODEINE PHOSPHATE [Suspect]
     Indication: BACK PAIN
  2. CLOZAPINE [Interacting]
     Route: 048
     Dates: start: 20050701, end: 20120425
  3. CLOZAPINE [Interacting]
     Route: 048
     Dates: start: 20120502
  4. SULPIRID [Concomitant]
  5. LAMOTRIGINE [Concomitant]
  6. IBUPROFEN [Interacting]
     Indication: BACK PAIN

REACTIONS (5)
  - NEUTROPENIA [None]
  - DRUG INTERACTION [None]
  - NEUTROPHIL COUNT DECREASED [None]
  - WHITE BLOOD CELL COUNT DECREASED [None]
  - BACK PAIN [None]
